FAERS Safety Report 22921422 (Version 2)
Quarter: 2024Q3

REPORT INFORMATION
  Report Type: Spontaneous
  Country: US (occurrence: None)
  Receive Date: 20230908
  Receipt Date: 20240906
  Transmission Date: 20241017
  Serious: No
  Sender: DOMPE FARMACEUTICI
  Company Number: US-FARMAPROD-202306-1767

PATIENT
  Age: 72 Year
  Sex: Female
  Weight: 68.49 kg

DRUGS (13)
  1. OXERVATE [Suspect]
     Active Substance: CENEGERMIN-BKBJ
     Indication: Neurotrophic keratopathy
     Route: 047
     Dates: start: 20230605
  2. OXERVATE [Suspect]
     Active Substance: CENEGERMIN-BKBJ
  3. OXERVATE [Suspect]
     Active Substance: CENEGERMIN-BKBJ
  4. AMLODIPINE BESYLATE [Concomitant]
     Active Substance: AMLODIPINE BESYLATE
  5. LATANOPROST [Concomitant]
     Active Substance: LATANOPROST
  6. ESTRADIOL [Concomitant]
     Active Substance: ESTRADIOL
  7. STELARA [Concomitant]
     Active Substance: USTEKINUMAB
     Dosage: SYRINGE
  8. FLOVENT HFA [Concomitant]
     Active Substance: FLUTICASONE PROPIONATE
     Dosage: AEROSOL WITH ADAPTER
  9. VAGIFEM [Concomitant]
     Active Substance: ESTRADIOL
  10. ACID REDUCER [Concomitant]
  11. OMEPRAZOLE MAGNESIUM [Concomitant]
     Active Substance: OMEPRAZOLE MAGNESIUM
  12. FLONASE ALLERGY RELIEF [Concomitant]
     Active Substance: FLUTICASONE PROPIONATE
     Dosage: SPRAY SUSPENSION
  13. HERBALS\TURMERIC [Concomitant]
     Active Substance: HERBALS\TURMERIC

REACTIONS (5)
  - Eye pain [Not Recovered/Not Resolved]
  - Headache [Unknown]
  - Wrong technique in product usage process [Unknown]
  - Ocular discomfort [Unknown]
  - Product storage error [Unknown]

NARRATIVE: CASE EVENT DATE: 20230605
